FAERS Safety Report 6559293-7 (Version None)
Quarter: 2010Q1

REPORT INFORMATION
  Report Type: 
  Country: None (occurrence: None)
  Receive Date: 20100129
  Receipt Date: 20090902
  Transmission Date: 20100710
  Serious: No
  Sender: FDA-Public Use
  Company Number: US-ABBOTT-09P-163-0579226-00

PATIENT
  Sex: Female
  Weight: 45.4 kg

DRUGS (5)
  1. HUMIRA [Suspect]
     Indication: RHEUMATOID ARTHRITIS
     Dates: start: 20070301
  2. CUPRIMINE [Concomitant]
     Indication: HEPATO-LENTICULAR DEGENERATION
  3. CUPRIMINE [Concomitant]
     Indication: RHEUMATOID ARTHRITIS
  4. ETODOLAC [Concomitant]
     Indication: PAIN
  5. LEXAPRO [Concomitant]
     Indication: ANXIETY

REACTIONS (5)
  - DRUG DOSE OMISSION [None]
  - HERPES ZOSTER [None]
  - ORAL HERPES [None]
  - STAPHYLOCOCCAL INFECTION [None]
  - STREPTOCOCCAL INFECTION [None]
